FAERS Safety Report 8788099 (Version 4)
Quarter: 2012Q4

REPORT INFORMATION
  Report Type: 
  Country: JP (occurrence: JP)
  Receive Date: 20120914
  Receipt Date: 20121105
  Transmission Date: 20130627
  Serious: Yes (Death, Hospitalization)
  Sender: FDA-Public Use
  Company Number: JP-ROCHE-1087893

PATIENT
  Age: 56 Year
  Sex: Female
  Weight: 54 kg

DRUGS (26)
  1. AVASTIN [Suspect]
     Indication: BREAST CANCER METASTATIC
     Route: 041
     Dates: start: 20120418, end: 20120711
  2. PACLITAXEL [Suspect]
     Indication: BREAST CANCER METASTATIC
     Dosage: 98-130mg once day
     Route: 041
     Dates: start: 20120418, end: 20120627
  3. DENOSUMAB [Suspect]
     Indication: METASTASES TO BONE
     Route: 058
     Dates: start: 20120712, end: 20120808
  4. DEXAMETHASONE SODIUM PHOSPHATE [Concomitant]
     Indication: PROPHYLAXIS
     Route: 041
     Dates: start: 20120418, end: 20120627
  5. ZANTAC [Concomitant]
     Indication: PROPHYLAXIS
     Route: 041
     Dates: start: 20120418, end: 20120627
  6. GRANISETRON [Concomitant]
     Indication: PROPHYLAXIS
     Route: 041
     Dates: start: 20120418, end: 20120627
  7. RESTAMIN [Concomitant]
     Indication: PROPHYLAXIS
     Route: 048
     Dates: start: 20120418, end: 20120627
  8. DEXAMETHASONE SODIUM PHOSPHATE [Concomitant]
  9. PACLITAXEL [Concomitant]
     Route: 065
     Dates: end: 20120711
  10. BUP-4 [Concomitant]
  11. AMOXAN [Concomitant]
  12. FLUVOXAMINE [Concomitant]
  13. CINAL [Concomitant]
  14. EPERISONE HYDROCHLORIDE [Concomitant]
  15. OXYCONTIN [Concomitant]
  16. LANSOPRAZOLE [Concomitant]
  17. DIOCTYL SODIUM SULFOSUCCINATE [Concomitant]
  18. BROTIZOLAM [Concomitant]
  19. MYSLEE [Concomitant]
  20. BLOPRESS [Concomitant]
  21. DENOSUMAB [Concomitant]
     Route: 065
     Dates: start: 20120523
  22. AMLODIPINE [Concomitant]
     Route: 065
     Dates: end: 20120808
  23. ALFACALCIDOL [Concomitant]
     Route: 065
     Dates: start: 20120712
  24. ASPARTATE CALCIUM [Concomitant]
     Route: 065
     Dates: start: 20120712
  25. FEMARA [Concomitant]
     Route: 065
     Dates: start: 20120725
  26. CLOTIAZEPAM [Concomitant]

REACTIONS (8)
  - Breast cancer [Fatal]
  - Convulsion [Fatal]
  - Cerebrovascular disorder [Fatal]
  - Altered state of consciousness [Fatal]
  - Interstitial lung disease [Unknown]
  - Hypertension [Recovering/Resolving]
  - Hypotension [Unknown]
  - Hypocalcaemia [Fatal]
